FAERS Safety Report 5085927-2 (Version None)
Quarter: 2006Q3

REPORT INFORMATION
  Report Type: 
  Country: None (occurrence: None)
  Receive Date: 20060817
  Receipt Date: 20060804
  Transmission Date: 20061208
  Serious: Yes (Death, Hospitalization)
  Sender: FDA-Public Use
  Company Number: 2006081913

PATIENT
  Age: 52 Year
  Sex: Male

DRUGS (5)
  1. IRINOTECAN HCL [Suspect]
     Indication: GASTRIC CANCER
  2. CISPLATIN [Suspect]
     Indication: GASTRIC CANCER
  3. MESNA [Suspect]
     Indication: GASTRIC CANCER
  4. ETOPOSIDE [Suspect]
     Indication: GASTRIC CANCER
  5. PACLITAXEL [Suspect]
     Indication: GASTRIC CANCER

REACTIONS (10)
  - ANAEMIA [None]
  - ASCITES [None]
  - DIARRHOEA [None]
  - FEBRILE NEUTROPENIA [None]
  - GASTRIC CANCER [None]
  - LYMPHADENOPATHY [None]
  - MALIGNANT NEOPLASM PROGRESSION [None]
  - METASTASES TO LIVER [None]
  - NEUROPATHY PERIPHERAL [None]
  - PNEUMONIA STREPTOCOCCAL [None]
